FAERS Safety Report 16852247 (Version 2)
Quarter: 2021Q2

REPORT INFORMATION
  Report Type: Spontaneous
  Country: US (occurrence: US)
  Receive Date: 20190925
  Receipt Date: 20210614
  Transmission Date: 20210716
  Serious: No
  Sender: FDA-Public Use
  Company Number: US-SA-2019SA265770

PATIENT
  Age: 46 Year
  Sex: Female

DRUGS (4)
  1. RASUVO [Concomitant]
     Active Substance: METHOTREXATE SODIUM
  2. KEVZARA [Suspect]
     Active Substance: SARILUMAB
     Dosage: 200 MG, QOW
     Route: 058
     Dates: start: 202104
  3. MTX [METHOTREXATE] [Concomitant]
     Active Substance: METHOTREXATE SODIUM
  4. KEVZARA [Suspect]
     Active Substance: SARILUMAB
     Indication: RHEUMATOID ARTHRITIS
     Dosage: 200 MG, QOW
     Route: 058
     Dates: start: 201809

REACTIONS (2)
  - Abdominal discomfort [Unknown]
  - Ear infection [Unknown]

NARRATIVE: CASE EVENT DATE: 2019
